FAERS Safety Report 5786814-4 (Version None)
Quarter: 2008Q2

REPORT INFORMATION
  Report Type: 
  Country: None (occurrence: None)
  Receive Date: 20080618
  Receipt Date: 20080609
  Transmission Date: 20081010
  Serious: Yes (Other)
  Sender: FDA-Public Use
  Company Number: 100#08#2008-03139

PATIENT
  Age: 21 Year
  Sex: Female

DRUGS (11)
  1. PHENOBARBITAL TAB [Suspect]
     Indication: CONVULSION
     Dosage: 120 MG AT NIGHT; 30 MG; 60 MG
     Route: 048
  2. RIFAMPICIN [Suspect]
     Indication: DRUG USE FOR UNKNOWN INDICATION
     Dosage: 600 MG; 300 MG;
     Route: 048
  3. OFLOXACIN [Concomitant]
  4. INH (ISONICOTINIC ACID HYDRAZIDE) [Concomitant]
  5. PYRAZINAMIDE [Concomitant]
  6. ETHAMBUTOL HYDROCHLORIDE [Suspect]
     Indication: DRUG USE FOR UNKNOWN INDICATION
     Dosage: 800 MG; 200 MG; 400 MG;
     Route: 048
  7. PHENYTOIN [Suspect]
     Indication: CONVULSION
     Dosage: 200 MG; 100 MG; ONCE
     Route: 042
  8. DEXAMETHASONE TAB [Concomitant]
  9. ACETAMINOPHNE (ACETAMINOPHEN) [Concomitant]
  10. BETAHISTINE DIHYDROCHLORIDE (BETAHISTINE DIHYDROCHLORIDE) [Concomitant]
  11. CLOBAZAM (CLOBAZAM) [Concomitant]

REACTIONS (1)
  - DRUG ERUPTION [None]
